FAERS Safety Report 11693336 (Version 1)
Quarter: 2015Q4

REPORT INFORMATION
  Report Type: Spontaneous
  Country: US (occurrence: None)
  Receive Date: 20151102
  Receipt Date: 20151102
  Transmission Date: 20160304
  Serious: No
  Sender: FDA-Public Use
  Company Number: None

PATIENT
  Age: 60 Year
  Sex: Male
  Weight: 90.72 kg

DRUGS (4)
  1. WARFARIN 5 MG [Suspect]
     Active Substance: WARFARIN
     Indication: THROMBOSIS
     Dosage: 5MG MWF  ?7.5MG STTHSAT
     Route: 048
     Dates: start: 20150401, end: 20151101
  2. PROSTAVAN [Concomitant]
  3. WARFARIN 5 MG [Suspect]
     Active Substance: WARFARIN
     Indication: RENAL DISORDER
     Dosage: 5MG MWF  ?7.5MG STTHSAT
     Route: 048
     Dates: start: 20150401, end: 20151101
  4. CLOBETASOL [Concomitant]
     Active Substance: CLOBETASOL

REACTIONS (1)
  - Rash [None]

NARRATIVE: CASE EVENT DATE: 20151101
